FAERS Safety Report 11603781 (Version 1)
Quarter: 2015Q4

REPORT INFORMATION
  Report Type: Spontaneous
  Country: US (occurrence: None)
  Receive Date: 20151006
  Receipt Date: 20151006
  Transmission Date: 20160304
  Serious: No
  Sender: FDA-Public Use
  Company Number: None

PATIENT
  Age: 16 Year
  Sex: Female
  Weight: 63.5 kg

DRUGS (3)
  1. WELLBUTRIN SR [Suspect]
     Active Substance: BUPROPION HYDROCHLORIDE
     Dosage: 1 PILL QAM
     Route: 048
     Dates: start: 20150901, end: 20150902
  2. ZYPREXA [Concomitant]
     Active Substance: OLANZAPINE
  3. SEROQUEL [Suspect]
     Active Substance: QUETIAPINE FUMARATE
     Dosage: 1 PILL
     Route: 048
     Dates: start: 20150901, end: 20151001

REACTIONS (1)
  - Nightmare [None]

NARRATIVE: CASE EVENT DATE: 20150902
